FAERS Safety Report 7550098-7 (Version None)
Quarter: 2011Q2

REPORT INFORMATION
  Report Type: 
  Country: None (occurrence: None)
  Receive Date: 20110615
  Receipt Date: 20110607
  Transmission Date: 20111010
  Serious: Yes (Other)
  Sender: FDA-Public Use
  Company Number: US-US-EMD SERONO, INC.-7064277

PATIENT
  Sex: Female

DRUGS (2)
  1. REBIF [Suspect]
     Indication: PRODUCT USED FOR UNKNOWN INDICATION
     Route: 058
     Dates: start: 20050607, end: 20110401
  2. REBIF [Suspect]
     Route: 058
     Dates: start: 20110501

REACTIONS (3)
  - BRONCHITIS [None]
  - PNEUMONIA [None]
  - GASTROENTERITIS VIRAL [None]
